FAERS Safety Report 10249960 (Version 2)
Quarter: 2014Q4

REPORT INFORMATION
  Report Type: Report from Study
  Country: BR (occurrence: BR)
  Receive Date: 20140620
  Receipt Date: 20141031
  Transmission Date: 20150528
  Serious: Yes (Death, Hospitalization)
  Sender: FDA-Public Use
  Company Number: BR-ABBVIE-14P-020-1249014-00

PATIENT
  Sex: Female

DRUGS (2)
  1. HUMIRA [Suspect]
     Active Substance: ADALIMUMAB
     Indication: RHEUMATOID ARTHRITIS
     Route: 058
  2. INSULIN [Concomitant]
     Active Substance: INSULIN NOS
     Indication: DIABETES MELLITUS

REACTIONS (5)
  - Malaise [Unknown]
  - Diabetes mellitus [Fatal]
  - Blood glucose decreased [Not Recovered/Not Resolved]
  - Osteoporosis [Unknown]
  - Osteoarthritis [Unknown]
